FAERS Safety Report 9648752 (Version 1)
Quarter: 2013Q4

REPORT INFORMATION
  Report Type: Spontaneous
  Country: US (occurrence: None)
  Receive Date: 20131025
  Receipt Date: 20131025
  Transmission Date: 20140711
  Serious: Yes (Hospitalization)
  Sender: FDA-Public Use
  Company Number: None

PATIENT
  Age: 88 Year
  Sex: Male

DRUGS (12)
  1. VANCOMYCIN [Suspect]
     Indication: URINARY TRACT INFECTION
     Route: 042
     Dates: start: 20110719, end: 20110727
  2. DOCUSATE [Concomitant]
  3. INSULIN [Concomitant]
  4. ESOMEPRAZOLE [Concomitant]
  5. ASPIRIN [Concomitant]
  6. FOLIC ACID [Concomitant]
  7. SIMVASTATIN [Concomitant]
  8. CLOPIDOGREL [Concomitant]
  9. FUROSEMIDE [Concomitant]
  10. TOLTERODINE [Concomitant]
  11. CARVEDILOL [Concomitant]
  12. REPAGLINIDE [Concomitant]

REACTIONS (1)
  - Blood creatinine increased [None]
